FAERS Safety Report 4304200-0 (Version None)
Quarter: 2004Q1

REPORT INFORMATION
  Report Type: 
  Country: None (occurrence: None)
  Receive Date: 20040224
  Receipt Date: 20040211
  Transmission Date: 20041129
  Serious: Yes (Death, Hospitalization)
  Sender: FDA-Public Use
  Company Number: GB-JNJFOC-20040104885

PATIENT
  Age: 71 Year
  Sex: Female

DRUGS (5)
  1. REMICADE [Suspect]
     Indication: RHEUMATOID ARTHRITIS
     Dosage: 145 MG, 1 IN 8 WEEKS, INTRAVENOUS
     Route: 042
     Dates: start: 20030609, end: 20031201
  2. METHOTREXATE [Concomitant]
  3. PREDNISOLONE [Concomitant]
  4. AMLODIPINE [Concomitant]
  5. GLYBURIDE [Concomitant]

REACTIONS (2)
  - DISSEMINATED TUBERCULOSIS [None]
  - DYSPNOEA [None]
